FAERS Safety Report 19186825 (Version 1)
Quarter: 2021Q2

REPORT INFORMATION
  Report Type: Spontaneous
  Country: US (occurrence: US)
  Receive Date: 20210428
  Receipt Date: 20210428
  Transmission Date: 20210717
  Serious: No
  Sender: FDA-Public Use
  Company Number: US-ASTRAZENECA-2020SE77271

PATIENT
  Sex: Female
  Weight: 58.1 kg

DRUGS (9)
  1. BACKLOFEN [Concomitant]
     Indication: SPONDYLITIS
  2. VIITAMIN D3 [Concomitant]
  3. AMBIEN [Concomitant]
     Active Substance: ZOLPIDEM TARTRATE
     Indication: SOMNOLENCE
  4. FOSAMAX [Concomitant]
     Active Substance: ALENDRONATE SODIUM
     Indication: BONE DENSITY ABNORMAL
  5. GABAPENTIN. [Concomitant]
     Active Substance: GABAPENTIN
     Indication: SPONDYLITIS
  6. VITAMIN B 100 COMPLEX [Concomitant]
  7. IMFINZI [Suspect]
     Active Substance: DURVALUMAB
     Indication: LUNG CARCINOMA CELL TYPE UNSPECIFIED STAGE III
     Route: 042
     Dates: start: 201912
  8. ELIQUIS [Concomitant]
     Active Substance: APIXABAN
     Indication: ANTICOAGULANT THERAPY
  9. FOLIC ACID. [Concomitant]
     Active Substance: FOLIC ACID

REACTIONS (1)
  - Fatigue [Not Recovered/Not Resolved]
